FAERS Safety Report 9272044 (Version 2)
Quarter: 2013Q3

REPORT INFORMATION
  Report Type: Spontaneous
  Country: DE (occurrence: SE)
  Receive Date: 20130506
  Receipt Date: 20130726
  Transmission Date: 20140515
  Serious: Yes (Other)
  Sender: FDA-Public Use
  Company Number: SE-FRI-1000044416

PATIENT
  Sex: Male

DRUGS (6)
  1. ROFLUMILAST [Suspect]
     Indication: BRONCHITIS CHRONIC
     Dosage: 500 MCG
     Dates: start: 20121121
  2. ROFLUMILAST [Suspect]
     Indication: BRONCHIECTASIS
  3. ACETYLCYSTEIN [Concomitant]
  4. ALVESCO [Concomitant]
     Dosage: 640 MCG
     Dates: start: 20121121
  5. ALVESCO [Concomitant]
     Dosage: 1280 MCG
  6. BISOLVON [Concomitant]
     Dosage: 2.6667 MG

REACTIONS (3)
  - Skin irritation [Unknown]
  - Pruritus [Unknown]
  - Depressed mood [Unknown]
